FAERS Safety Report 18914663 (Version 1)
Quarter: 2021Q1

REPORT INFORMATION
  Report Type: Report from Study
  Country: BR (occurrence: BR)
  Receive Date: 20210218
  Receipt Date: 20210218
  Transmission Date: 20210420
  Serious: Yes (Other)
  Sender: FDA-Public Use
  Company Number: BR-GILEAD-2021-0517718

PATIENT
  Age: 34 Year
  Sex: Female
  Weight: 107 kg

DRUGS (34)
  1. BLINDED TOCILIZUMAB [Suspect]
     Active Substance: TOCILIZUMAB
     Indication: COVID-19 PNEUMONIA
     Dosage: UNK
     Route: 042
     Dates: start: 20201115
  2. ENOXAPARIN [Concomitant]
     Active Substance: ENOXAPARIN
  3. ESOMEPRAZOLE. [Concomitant]
     Active Substance: ESOMEPRAZOLE MAGNESIUM
  4. BUDESONIDE. [Concomitant]
     Active Substance: BUDESONIDE
  5. SODIUM PHOSPHATE MONOBASIC [Concomitant]
     Active Substance: SODIUM PHOSPHATE, MONOBASIC
  6. DEXAMETHASONE. [Concomitant]
     Active Substance: DEXAMETHASONE
  7. N?ACETYLCYSTEINE [Concomitant]
     Active Substance: ACETYLCYSTEINE
  8. HEPARIN [Concomitant]
     Active Substance: HEPARIN SODIUM
  9. INSULIN REGULAR [INSULIN BOVINE] [Concomitant]
     Active Substance: INSULIN BEEF
  10. BLINDED REMDESIVIR [Suspect]
     Active Substance: REMDESIVIR
     Indication: COVID-19 PNEUMONIA
     Dosage: UNK
     Route: 042
     Dates: start: 20201115
  11. NOREPINEPHRINE. [Concomitant]
     Active Substance: NOREPINEPHRINE
  12. CITONEURIN [Concomitant]
     Active Substance: CYANOCOBALAMIN\PYRIDOXINE HYDROCHLORIDE\THIAMINE
  13. SUCCINYLCHOLINE [SUXAMETHONIUM] [Concomitant]
     Active Substance: SUCCINYLCHOLINE
  14. NORADRENALINE (NORPINEPHRINE) [Concomitant]
     Active Substance: NOREPINEPHRINE
  15. IVERMECTIN. [Concomitant]
     Active Substance: IVERMECTIN
  16. OMEPRAZOLE. [Concomitant]
     Active Substance: OMEPRAZOLE
  17. DEXMEDETOMIDINE. [Concomitant]
     Active Substance: DEXMEDETOMIDINE
  18. BROMOPRIDE [Concomitant]
     Active Substance: BROMOPRIDE
  19. FENTANYL. [Concomitant]
     Active Substance: FENTANYL
  20. PREDNISONE. [Concomitant]
     Active Substance: PREDNISONE
  21. PLACEBO [Suspect]
     Active Substance: UNSPECIFIED INGREDIENT
     Indication: COVID-19 PNEUMONIA
     Dosage: UNK
     Route: 042
     Dates: start: 20201115
  22. SALBUTAMOL [Concomitant]
     Active Substance: ALBUTEROL
  23. TRAMADOL. [Concomitant]
     Active Substance: TRAMADOL
  24. MIDAZOLAM. [Concomitant]
     Active Substance: MIDAZOLAM
  25. HALOPERIDOL [HALOPERIDOL DECANOATE] [Concomitant]
  26. QUETIAPINE. [Concomitant]
     Active Substance: QUETIAPINE
  27. MEROPENEM. [Concomitant]
     Active Substance: MEROPENEM
  28. METHYLPREDNISOLONE. [Concomitant]
     Active Substance: METHYLPREDNISOLONE
  29. PROPOFOL. [Concomitant]
     Active Substance: PROPOFOL
  30. PIPERACILLIN AND TAZOBACTAM [Concomitant]
     Active Substance: PIPERACILLIN SODIUM\TAZOBACTAM SODIUM
  31. OXYGEN. [Concomitant]
     Active Substance: OXYGEN
  32. PANTOPRAZOLE [Concomitant]
     Active Substance: PANTOPRAZOLE
  33. DIPYRONE [Concomitant]
     Active Substance: DIPYRONE
  34. ROCURONIO [Concomitant]
     Active Substance: ROCURONIUM BROMIDE

REACTIONS (1)
  - Pneumonia [Recovered/Resolved]

NARRATIVE: CASE EVENT DATE: 20201203
